FAERS Safety Report 7548160-8 (Version None)
Quarter: 2011Q2

REPORT INFORMATION
  Report Type: 
  Country: None (occurrence: None)
  Receive Date: 20110524
  Receipt Date: 20110201
  Transmission Date: 20111010
  Serious: No
  Sender: FDA-Public Use
  Company Number: 026700

PATIENT
  Sex: Female

DRUGS (2)
  1. CIMZIA [Suspect]
     Indication: CROHN'S DISEASE
     Dosage: 400 MG 1X/2 WEEKS SUBCUTANEOUS, 200 MG 1X/2 WEEKS, 01/FEB/2011 DOSE ON HOLD SUBCUTANEOUS
     Route: 058
     Dates: start: 20100701
  2. CIMZIA [Suspect]
     Indication: CROHN'S DISEASE
     Dosage: 400 MG 1X/2 WEEKS SUBCUTANEOUS, 200 MG 1X/2 WEEKS, 01/FEB/2011 DOSE ON HOLD SUBCUTANEOUS
     Route: 058
     Dates: start: 20090615, end: 20090713

REACTIONS (1)
  - PRODUCTIVE COUGH [None]
